FAERS Safety Report 14954995 (Version 1)
Quarter: 2018Q2

REPORT INFORMATION
  Report Type: Spontaneous
  Country: FR (occurrence: FR)
  Receive Date: 20180531
  Receipt Date: 20180531
  Transmission Date: 20180711
  Serious: Yes (Disabling)
  Sender: FDA-Public Use
  Company Number: FR-TEVA-2018-FR-899643

PATIENT
  Age: 75 Year
  Sex: Female

DRUGS (9)
  1. DULOXETINE. [Suspect]
     Active Substance: DULOXETINE
     Indication: DEPRESSION
     Dosage: 60 MILLIGRAM DAILY;
     Route: 048
     Dates: start: 20160823, end: 20160927
  2. HYDROCHLOROTHIAZIDE. [Suspect]
     Active Substance: HYDROCHLOROTHIAZIDE
     Dosage: 12.5 MILLIGRAM DAILY;
     Route: 048
     Dates: start: 2010
  3. BETAXOLOL (CHLORHYDRATE DE) [Suspect]
     Active Substance: BETAXOLOL HYDROCHLORIDE
     Dosage: 20 MILLIGRAM DAILY;
     Route: 048
     Dates: start: 2000
  4. INSULINE ASPARTE ((LEVURE/SACCHAROMYCES CEREVISIAE)) [Concomitant]
     Active Substance: INSULIN ASPART
     Route: 065
     Dates: start: 2011
  5. EMBONATE DE METFORMINE [Concomitant]
     Route: 065
     Dates: start: 2000
  6. LOSARTAN. [Suspect]
     Active Substance: LOSARTAN
     Dosage: 50 MILLIGRAM DAILY;
     Route: 048
     Dates: start: 2010
  7. INSULINE DETEMIR ((LEVURE/SACCHAROMYCES CEREVISIAE)) [Concomitant]
     Route: 065
     Dates: start: 2011
  8. RABEPRAZOLE SODIQUE [Concomitant]
     Active Substance: RABEPRAZOLE SODIUM
     Route: 065
     Dates: start: 2010
  9. ALDACTONE [Suspect]
     Active Substance: SPIRONOLACTONE
     Dosage: 50 MILLIGRAM DAILY;
     Route: 048
     Dates: start: 2000

REACTIONS (3)
  - Dizziness [Recovered/Resolved with Sequelae]
  - Balance disorder [Recovered/Resolved with Sequelae]
  - Fall [Recovered/Resolved with Sequelae]

NARRATIVE: CASE EVENT DATE: 20160823
